FAERS Safety Report 6201804-5 (Version None)
Quarter: 2009Q2

REPORT INFORMATION
  Report Type: 
  Country: None (occurrence: None)
  Receive Date: 20090520
  Receipt Date: 20090505
  Transmission Date: 20091009
  Serious: Yes (Life-Threatening, Other)
  Sender: FDA-Public Use
  Company Number: 2008S1012490

PATIENT
  Age: 63 Year
  Sex: Female

DRUGS (4)
  1. ESTRADIOL [Suspect]
     Indication: HORMONE REPLACEMENT THERAPY
     Dosage: 0.05 MCG; DAILY; TRANSDERMAL
     Route: 062
     Dates: start: 20080506, end: 20080509
  2. ESTRADIOL [Suspect]
     Indication: HORMONE REPLACEMENT THERAPY
     Dosage: 0.1 MG; DAILY; TRANSDERMAL
     Route: 062
     Dates: start: 20080506, end: 20080509
  3. VIVELLE-DOT [Suspect]
     Indication: HORMONE REPLACEMENT THERAPY
     Dosage: TRANSDERMAL
     Route: 062
     Dates: start: 20080101
  4. CLIMARA [Suspect]
     Indication: HORMONE REPLACEMENT THERAPY
     Dosage: TRANSDERMAL
     Route: 062
     Dates: start: 20080509

REACTIONS (16)
  - ABDOMINAL DISTENSION [None]
  - ANGER [None]
  - ANXIETY [None]
  - BRUXISM [None]
  - CHILLS [None]
  - CRYING [None]
  - DEPRESSION [None]
  - DRY EYE [None]
  - GASTRIC DISORDER [None]
  - HEADACHE [None]
  - HYPERHIDROSIS [None]
  - NERVOUSNESS [None]
  - PANIC ATTACK [None]
  - PRODUCT SUBSTITUTION ISSUE [None]
  - SKIN LACERATION [None]
  - SUICIDAL IDEATION [None]
